FAERS Safety Report 11180772 (Version 3)
Quarter: 2015Q4

REPORT INFORMATION
  Report Type: Spontaneous
  Country: US (occurrence: US)
  Receive Date: 20150611
  Receipt Date: 20151005
  Transmission Date: 20160304
  Serious: Yes (Other)
  Sender: FDA-Public Use
  Company Number: US-PFIZER INC-2015193089

PATIENT
  Age: 69 Year
  Sex: Male
  Weight: 96 kg

DRUGS (3)
  1. NEXIUM [Suspect]
     Active Substance: ESOMEPRAZOLE MAGNESIUM
     Indication: GASTROOESOPHAGEAL REFLUX DISEASE
     Dosage: 40 MG, DAILY
     Route: 048
     Dates: start: 1996
  2. CELEBREX [Suspect]
     Active Substance: CELECOXIB
     Indication: CANCER PAIN
     Dosage: 200 MG, 1X/DAY
     Dates: start: 201211
  3. CELEBREX [Suspect]
     Active Substance: CELECOXIB
     Indication: NEOPLASM MALIGNANT

REACTIONS (5)
  - Diarrhoea [Not Recovered/Not Resolved]
  - Decreased appetite [Recovered/Resolved]
  - Weight decreased [Not Recovered/Not Resolved]
  - Disease progression [Recovered/Resolved]
  - Angiosarcoma [Recovered/Resolved]

NARRATIVE: CASE EVENT DATE: 2012
